FAERS Safety Report 10029672 (Version 2)
Quarter: 2014Q1

REPORT INFORMATION
  Report Type: Spontaneous
  Country: US (occurrence: US)
  Receive Date: 20140322
  Receipt Date: 20140322
  Transmission Date: 20141002
  Serious: Yes (Disabling)
  Sender: FDA-Public Use
  Company Number: US-GE HEALTHCARE MEDICAL DIAGNOSTICS-OSCN-PR-0712S-0501

PATIENT
  Age: 33 Year
  Sex: Male

DRUGS (6)
  1. OMNISCAN [Suspect]
     Indication: PRODUCT USED FOR UNKNOWN INDICATION
     Route: 042
     Dates: start: 19941117, end: 19941117
  2. OMNISCAN [Suspect]
     Indication: ENCEPHALITIS
     Route: 042
     Dates: start: 20020829, end: 20020829
  3. OMNISCAN [Suspect]
     Indication: CEREBROVASCULAR ACCIDENT
     Route: 042
     Dates: start: 20060608, end: 20060608
  4. OMNISCAN [Suspect]
     Indication: HAEMATOMA
     Route: 042
     Dates: start: 20060613, end: 20060613
  5. OMNISCAN [Suspect]
     Indication: CELLULITIS
     Route: 042
     Dates: start: 20060715, end: 20060715
  6. EPOGEN [Concomitant]

REACTIONS (1)
  - Nephrogenic systemic fibrosis [Not Recovered/Not Resolved]
